FAERS Safety Report 10711500 (Version 2)
Quarter: 2015Q1

REPORT INFORMATION
  Report Type: Report from Study
  Country: CZ (occurrence: CZ)
  Receive Date: 20150114
  Receipt Date: 20150127
  Transmission Date: 20150721
  Serious: Yes (Other)
  Sender: FDA-Public Use
  Company Number: CZ-CELGENE-CZE-2014125363

PATIENT
  Sex: Male

DRUGS (6)
  1. VINCRISTINE [Concomitant]
     Active Substance: VINCRISTINE
     Indication: PLASMA CELL MYELOMA
     Route: 065
     Dates: start: 20101018, end: 20101127
  2. CISPLATIN. [Concomitant]
     Active Substance: CISPLATIN
     Indication: PLASMA CELL MYELOMA
     Route: 065
     Dates: start: 20101018, end: 20101127
  3. DEXAMETHASONE. [Concomitant]
     Active Substance: DEXAMETHASONE
     Indication: PLASMA CELL MYELOMA
     Route: 065
     Dates: start: 20101018, end: 20101127
  4. REVLIMID [Suspect]
     Active Substance: LENALIDOMIDE
     Indication: PLASMA CELL MYELOMA
     Route: 048
     Dates: start: 20101018, end: 20101127
  5. CYTARABINE. [Concomitant]
     Active Substance: CYTARABINE
     Indication: PLASMA CELL MYELOMA
     Route: 065
     Dates: start: 20101018, end: 20101127
  6. ETOPOSIDE. [Concomitant]
     Active Substance: ETOPOSIDE
     Indication: PLASMA CELL MYELOMA
     Route: 065
     Dates: start: 20101018, end: 20101127

REACTIONS (6)
  - Dyspnoea [Unknown]
  - Malaise [Unknown]
  - General physical health deterioration [Unknown]
  - Weight decreased [Unknown]
  - Restlessness [Unknown]
  - Renal impairment [Unknown]
